FAERS Safety Report 19228441 (Version 1)
Quarter: 2021Q2

REPORT INFORMATION
  Report Type: Spontaneous
  Country: ES (occurrence: ES)
  Receive Date: 20210507
  Receipt Date: 20210507
  Transmission Date: 20210717
  Serious: Yes (Hospitalization)
  Sender: FDA-Public Use
  Company Number: ES-AUROBINDO-AUR-APL-2021-017545

PATIENT
  Age: 5 Month
  Sex: Male

DRUGS (4)
  1. VALPROIC ACID. [Suspect]
     Active Substance: VALPROIC ACID
     Dosage: 1 MILLIGRAM/KILOGRAM PER HOUR
     Route: 040
  2. VALPROIC ACID. [Suspect]
     Active Substance: VALPROIC ACID
     Indication: EPILEPSY
     Dosage: 400 MILLIGRAM
     Route: 040
  3. VALPROIC ACID. [Suspect]
     Active Substance: VALPROIC ACID
     Dosage: 1.5 MILLIGRAM/KILOGRAM PER HOUR
     Route: 040
  4. VALPROIC ACID. [Suspect]
     Active Substance: VALPROIC ACID
     Indication: EPILEPSY
     Dosage: 40 MILLIGRAM/KILOGRAM, ONCE A DAY
     Route: 048

REACTIONS (2)
  - Hyperammonaemia [Recovered/Resolved]
  - Overdose [Unknown]
